FAERS Safety Report 25861198 (Version 2)
Quarter: 2025Q4

REPORT INFORMATION
  Report Type: Spontaneous
  Country: EU (occurrence: EU)
  Receive Date: 20250929
  Receipt Date: 20251016
  Transmission Date: 20260118
  Serious: No
  Sender: NOVARTIS
  Company Number: EU-002147023-NVSC2025CZ147290

PATIENT
  Sex: Female

DRUGS (1)
  1. KESIMPTA [Suspect]
     Active Substance: OFATUMUMAB
     Indication: Product used for unknown indication
     Dosage: UNK
     Route: 065
     Dates: start: 202208, end: 202509

REACTIONS (1)
  - Eczema [Unknown]
